FAERS Safety Report 9515543 (Version 2)
Quarter: 2014Q1

REPORT INFORMATION
  Report Type: Spontaneous
  Country: US (occurrence: None)
  Receive Date: 20130305
  Receipt Date: 20140306
  Transmission Date: 20141002
  Serious: Yes (Disabling)
  Sender: FDA-Public Use
  Company Number: 163-21880-12102854

PATIENT
  Age: 68 Year
  Sex: Female
  Weight: 73.03 kg

DRUGS (15)
  1. REVLIMID (LENALIDOMIDE) (10 MLLIGRAM, CAPSULES) [Suspect]
     Indication: PLASMA CELL MYELOMA
     Dosage: 10 MG, 1 IN 1 D, PO
     Route: 048
     Dates: start: 201107
  2. ASPIRIN (ACETYLSALICYLIC ACID) (UNKNOWN) (ACETYLSALICYLIC ACID) [Concomitant]
  3. COREG (CARVEDILOL) (UNKNOWN) [Concomitant]
  4. FENTANYL (FENTANYL) (UNKNOWN) (FENTANYL) [Concomitant]
  5. LASIX (FUROSEMIDE) (UNKNOWN) [Concomitant]
  6. LEVOTHYROXIN (LEVOTHYROXINE SODIUM) (UNKNOWN) [Concomitant]
  7. MORPHINE (MORPHINE) (UNKNOWN) (MORPHINE) [Concomitant]
  8. POTASSIUM (POTASSIUM) (UNKNOWN) [Concomitant]
  9. PRAVASTATIN (PRAVASTATIN) (UNKNOWN) [Concomitant]
  10. PROCHLORPERAZINE [Concomitant]
  11. PROTONIX (UNKNOWN) [Concomitant]
  12. SUCRALFATE (SUCRALFATE) (UNKNOWN) [Concomitant]
  13. ZOLPIDEM (ZOLPIDEM) (UNKNOWN) (ZOLPIDEM) [Concomitant]
  14. DOXYCYCLINE MONOHYDRTAE [Concomitant]
  15. NEXIUM (ESOMEPRAZOLE) [Concomitant]

REACTIONS (4)
  - Fatigue [None]
  - Nausea [None]
  - Wound [None]
  - Anaemia [None]
